FAERS Safety Report 9329741 (Version 1)
Quarter: 2013Q2

REPORT INFORMATION
  Report Type: Spontaneous
  Country: US (occurrence: US)
  Receive Date: 20130604
  Receipt Date: 20130604
  Transmission Date: 20140414
  Serious: No
  Sender: FDA-Public Use
  Company Number: US-SANOFI-AVENTIS-2013SA035578

PATIENT
  Age: 72 Year
  Sex: Female

DRUGS (6)
  1. SOLOSTAR [Suspect]
     Indication: TYPE 2 DIABETES MELLITUS
     Dates: start: 20130212
  2. LANTUS SOLOSTAR [Suspect]
     Indication: TYPE 2 DIABETES MELLITUS
     Dosage: DOSE:38 UNIT(S)
     Route: 051
     Dates: start: 20130212
  3. NOVOLOG [Concomitant]
     Indication: DIABETES MELLITUS
  4. IBUPROFEN [Concomitant]
     Indication: PAIN
     Dosage: DOSE: VARIES
  5. BUDESONIDE [Concomitant]
     Dosage: STRENGTH: 0.5 MG
  6. AMLODIPINE [Concomitant]
     Indication: BLOOD PRESSURE

REACTIONS (2)
  - Visual acuity reduced [Recovered/Resolved]
  - Blood glucose increased [Recovered/Resolved]
